FAERS Safety Report 16053386 (Version 5)
Quarter: 2019Q4

REPORT INFORMATION
  Report Type: Report from Study
  Country: IE (occurrence: IE)
  Receive Date: 20190308
  Receipt Date: 20191015
  Transmission Date: 20200122
  Serious: Yes (Other)
  Sender: FDA-Public Use
  Company Number: PHHY2018IE110047

PATIENT
  Age: 44 Year
  Sex: Male

DRUGS (4)
  1. COSENTYX [Suspect]
     Active Substance: SECUKINUMAB
     Indication: PSORIATIC ARTHROPATHY
     Dosage: 300 MG, PER APPLICATION (PRE FILLED PEN)
     Route: 065
     Dates: start: 20160531, end: 20160628
  2. COSENTYX [Suspect]
     Active Substance: SECUKINUMAB
     Dosage: 300 MG, PER APPLICATION (PRE FILLED PEN)
     Route: 065
     Dates: start: 20190228
  3. COSENTYX [Suspect]
     Active Substance: SECUKINUMAB
     Dosage: 300 MG, PER APPLICATION (PRE FILLED PEN)
     Route: 065
     Dates: start: 20181220, end: 20190117
  4. COSENTYX [Suspect]
     Active Substance: SECUKINUMAB
     Dosage: 300 MG, PER APPLICATION (PRE FILLED PEN)
     Route: 065
     Dates: start: 20190814

REACTIONS (8)
  - Nasopharyngitis [Recovered/Resolved with Sequelae]
  - Influenza [Recovered/Resolved]
  - Oropharyngeal pain [Recovered/Resolved]
  - Nasopharyngitis [Recovered/Resolved with Sequelae]
  - Psoriasis [Not Recovered/Not Resolved]
  - Lower respiratory tract infection [Recovered/Resolved]
  - Influenza [Recovered/Resolved with Sequelae]
  - Ear pain [Recovered/Resolved]

NARRATIVE: CASE EVENT DATE: 20180730
